FAERS Safety Report 9750577 (Version 1)
Quarter: 2013Q4

REPORT INFORMATION
  Report Type: Spontaneous
  Country: US (occurrence: US)
  Receive Date: 20131212
  Receipt Date: 20131212
  Transmission Date: 20140711
  Serious: No
  Sender: FDA-Public Use
  Company Number: US-BIOGENIDEC-2013BI097476

PATIENT
  Age: 69 Year
  Sex: Female

DRUGS (6)
  1. TECFIDERA [Suspect]
     Indication: MULTIPLE SCLEROSIS
     Route: 048
     Dates: start: 201305
  2. XANAX [Concomitant]
  3. AMLODIPINE BESYLATE [Concomitant]
  4. CRESTOR [Concomitant]
  5. WELLBUTRIN [Concomitant]
  6. BENICARE [Concomitant]

REACTIONS (2)
  - Rash [Unknown]
  - Pruritus [Unknown]
